FAERS Safety Report 14997295 (Version 1)
Quarter: 2018Q2

REPORT INFORMATION
  Report Type: Spontaneous
  Country: US (occurrence: US)
  Receive Date: 20180522
  Receipt Date: 20180522
  Transmission Date: 20180711
  Serious: Yes (Disabling)
  Sender: FDA-Public Use
  Company Number: None

PATIENT
  Age: 36 Year
  Sex: Female
  Weight: 63.9 kg

DRUGS (3)
  1. MIRENA [Suspect]
     Active Substance: LEVONORGESTREL
     Indication: MENSTRUATION IRREGULAR
     Dosage: ?          QUANTITY:1 IUD IMPLANT;OTHER FREQUENCY:IMPLANT 3-5 YEARS;OTHER ROUTE:UTERINE IMPLANT?
     Dates: start: 20170822
  2. OMEGA CAPSULES [Concomitant]
  3. MIRENA [Suspect]
     Active Substance: LEVONORGESTREL
     Indication: OVARIAN CYST
     Dosage: ?          QUANTITY:1 IUD IMPLANT;OTHER FREQUENCY:IMPLANT 3-5 YEARS;OTHER ROUTE:UTERINE IMPLANT?
     Dates: start: 20170822

REACTIONS (6)
  - Loss of personal independence in daily activities [None]
  - Crying [None]
  - Negative thoughts [None]
  - Ocular icterus [None]
  - Depression [None]
  - Anxiety [None]

NARRATIVE: CASE EVENT DATE: 20170822
